FAERS Safety Report 6521866-5 (Version None)
Quarter: 2009Q4

REPORT INFORMATION
  Report Type: 
  Country: None (occurrence: None)
  Receive Date: 20091229
  Receipt Date: 20091229
  Transmission Date: 20100525
  Serious: No
  Sender: FDA-Public Use
  Company Number: None

PATIENT
  Age: 61 Year
  Sex: Male
  Weight: 70.3 kg

DRUGS (3)
  1. PACLITAXEL [Suspect]
     Indication: METASTASES TO BONE
     Dosage: 114 MG ONCE IV
     Route: 042
     Dates: start: 20090205, end: 20090205
  2. PACLITAXEL [Suspect]
     Indication: NON-SMALL CELL LUNG CANCER STAGE IV
     Dosage: 114 MG ONCE IV
     Route: 042
     Dates: start: 20090205, end: 20090205
  3. PACLITAXEL [Suspect]

REACTIONS (4)
  - ANAPHYLACTIC REACTION [None]
  - CHEST DISCOMFORT [None]
  - FLUSHING [None]
  - HYPOTENSION [None]
